FAERS Safety Report 4506530-6 (Version None)
Quarter: 2004Q4

REPORT INFORMATION
  Report Type: 
  Country: None (occurrence: None)
  Receive Date: 20041122
  Receipt Date: 20041117
  Transmission Date: 20050328
  Serious: Yes (Hospitalization)
  Sender: FDA-Public Use
  Company Number: US-JNJFOC-20041104507

PATIENT
  Sex: Female

DRUGS (7)
  1. DURAGESIC [Suspect]
     Route: 062
  2. DURAGESIC [Suspect]
     Route: 062
  3. VALIUM [Concomitant]
     Route: 049
  4. PROTONIX [Concomitant]
     Route: 049
  5. ISOSORBIDE [Concomitant]
     Route: 049
  6. ASPIRIN [Concomitant]
     Route: 049
  7. COZAAR [Concomitant]
     Route: 049

REACTIONS (6)
  - ANXIETY [None]
  - CHEST PAIN [None]
  - HEART RATE DECREASED [None]
  - HYPOTENSION [None]
  - INTENTIONAL MISUSE [None]
  - TREMOR [None]
